FAERS Safety Report 18172598 (Version 5)
Quarter: 2020Q4

REPORT INFORMATION
  Report Type: Report from Study
  Country: US (occurrence: US)
  Receive Date: 20200819
  Receipt Date: 20201006
  Transmission Date: 20210113
  Serious: Yes (Hospitalization, Other)
  Sender: FDA-Public Use
  Company Number: NVSC2020US228916

PATIENT
  Sex: Male

DRUGS (1)
  1. ENTRESTO [Suspect]
     Active Substance: SACUBITRIL\VALSARTAN
     Indication: CARDIAC FAILURE
     Dosage: UNK UNK, BID
     Route: 048

REACTIONS (8)
  - Carotid artery occlusion [Unknown]
  - Carotid artery thrombosis [Unknown]
  - Fatigue [Unknown]
  - Confusional state [Unknown]
  - Therapeutic response unexpected [Unknown]
  - Blindness [Unknown]
  - Dizziness [Unknown]
  - Photophobia [Unknown]
